FAERS Safety Report 9250406 (Version 4)
Quarter: 2013Q2

REPORT INFORMATION
  Report Type: Spontaneous
  Country: CA (occurrence: CA)
  Receive Date: 20130424
  Receipt Date: 20130605
  Transmission Date: 20140414
  Serious: Yes (Hospitalization, Other)
  Sender: FDA-Public Use
  Company Number: CA-ROCHE-1195311

PATIENT
  Sex: Female

DRUGS (1)
  1. XOLAIR [Suspect]
     Indication: ASTHMA
     Route: 058
     Dates: start: 20130104, end: 20130506

REACTIONS (4)
  - Malaise [Unknown]
  - Emphysema [Unknown]
  - Lung disorder [Unknown]
  - No therapeutic response [Unknown]
